FAERS Safety Report 4812793-X (Version None)
Quarter: 2005Q4

REPORT INFORMATION
  Report Type: 
  Country: None (occurrence: None)
  Receive Date: 20051028
  Receipt Date: 20041118
  Transmission Date: 20060501
  Serious: No
  Sender: FDA-Public Use
  Company Number: US-GLAXOSMITHKLINE-A0534486A

PATIENT
  Age: 7 Year
  Sex: Female
  Weight: 30.9 kg

DRUGS (3)
  1. ADVAIR DISKUS 100/50 [Suspect]
     Indication: ASTHMA
     Dosage: 1PUFF TWICE PER DAY
     Route: 055
     Dates: start: 20021213
  2. SINGULAIR [Concomitant]
     Dates: start: 20030716
  3. ZYRTEC [Concomitant]

REACTIONS (1)
  - CANDIDIASIS [None]
